FAERS Safety Report 4596653-8 (Version None)
Quarter: 2005Q1

REPORT INFORMATION
  Report Type: 
  Country: None (occurrence: None)
  Receive Date: 20050228
  Receipt Date: 20040526
  Transmission Date: 20050727
  Serious: Yes (Death, Hospitalization)
  Sender: FDA-Public Use
  Company Number: 8063

PATIENT
  Age: 67 Year
  Sex: Male

DRUGS (13)
  1. METHOTREXATE [Suspect]
     Indication: RHEUMATOID ARTHRITIS
     Dosage: 5 MG WEEKLY/4 MG WEEKLY/2 MG WEEKLY/4 MG WEEKLY/6 MG WEEKLY PO
     Route: 048
     Dates: start: 19970804, end: 19990801
  2. METHOTREXATE [Suspect]
     Indication: RHEUMATOID ARTHRITIS
     Dosage: 5 MG WEEKLY/4 MG WEEKLY/2 MG WEEKLY/4 MG WEEKLY/6 MG WEEKLY PO
     Route: 048
     Dates: start: 19990801, end: 20021001
  3. METHOTREXATE [Suspect]
     Indication: RHEUMATOID ARTHRITIS
     Dosage: 5 MG WEEKLY/4 MG WEEKLY/2 MG WEEKLY/4 MG WEEKLY/6 MG WEEKLY PO
     Route: 048
     Dates: start: 20021023, end: 20031022
  4. METHOTREXATE [Suspect]
     Indication: RHEUMATOID ARTHRITIS
     Dosage: 5 MG WEEKLY/4 MG WEEKLY/2 MG WEEKLY/4 MG WEEKLY/6 MG WEEKLY PO
     Route: 048
     Dates: start: 20031023, end: 20031119
  5. METHOTREXATE [Suspect]
     Indication: RHEUMATOID ARTHRITIS
     Dosage: 5 MG WEEKLY/4 MG WEEKLY/2 MG WEEKLY/4 MG WEEKLY/6 MG WEEKLY PO
     Route: 048
     Dates: start: 20031120, end: 20040212
  6. ETODOLAC [Suspect]
     Indication: RHEUMATOID ARTHRITIS
     Dosage: 400 MG PO
     Route: 048
     Dates: start: 20031203, end: 20040216
  7. METHYLPREDNISOLONE [Suspect]
     Indication: RHEUMATOID ARTHRITIS
     Dosage: 6 MG IV
     Route: 042
     Dates: start: 20031203, end: 20040213
  8. INFLIXIMAB [Suspect]
     Indication: RHEUMATOID ARTHRITIS
     Dosage: 3 MG/KG OTH IV
     Route: 042
     Dates: start: 20031204, end: 20040114
  9. CALCITRIOL [Concomitant]
  10. MISOPROSTOL [Concomitant]
  11. OMEPRAZOLE [Concomitant]
  12. SENNOSIDE A+B [Concomitant]
  13. MECOBALAMIN [Concomitant]

REACTIONS (21)
  - ADRENAL INSUFFICIENCY [None]
  - ASPARTATE AMINOTRANSFERASE INCREASED [None]
  - BLOOD ALBUMIN DECREASED [None]
  - BLOOD ALKALINE PHOSPHATASE INCREASED [None]
  - BLOOD LACTATE DEHYDROGENASE INCREASED [None]
  - BLOOD PRESSURE DECREASED [None]
  - CARDIAC ARREST [None]
  - CHLAMYDIAL INFECTION [None]
  - DRUG INTERACTION [None]
  - ELECTROLYTE IMBALANCE [None]
  - HYPOKALAEMIA [None]
  - HYPONATRAEMIA [None]
  - INTERSTITIAL LUNG DISEASE [None]
  - LYMPHOCYTE PERCENTAGE DECREASED [None]
  - METABOLIC ACIDOSIS [None]
  - NEUTROPHIL PERCENTAGE INCREASED [None]
  - PNEUMOCYSTIS JIROVECI INFECTION [None]
  - PNEUMONIA [None]
  - PULMONARY MYCOSIS [None]
  - RESPIRATORY FAILURE [None]
  - WHITE BLOOD CELL COUNT INCREASED [None]
